FAERS Safety Report 10640232 (Version 3)
Quarter: 2015Q1

REPORT INFORMATION
  Report Type: Spontaneous
  Country: ES (occurrence: None)
  Receive Date: 20141205
  Receipt Date: 20150129
  Transmission Date: 20150720
  Serious: Yes (Other)
  Sender: FDA-Public Use
  Company Number: 2014ES010352

PATIENT
  Age: 77 Year
  Sex: Male

DRUGS (4)
  1. ELIGARD [Suspect]
     Active Substance: LEUPROLIDE ACETATE
     Indication: PROSTATE CANCER
     Dosage: 45 MG, CYCLIC BI-ANNUALLY, SUBCUTANEOUS
     Route: 058
     Dates: start: 20140129
  2. SINTROM (ACENOCOUMAROL) [Concomitant]
     Active Substance: ACENOCOUMAROL
  3. LOPRESOR (METOPROLOL TARTRATE) [Concomitant]
  4. OMEPRAZOLE. [Concomitant]
     Active Substance: OMEPRAZOLE

REACTIONS (5)
  - Interstitial lung disease [None]
  - Inflammation [None]
  - Lung infection [None]
  - Pulmonary fibrosis [None]
  - Chronic obstructive pulmonary disease [None]

NARRATIVE: CASE EVENT DATE: 20140409
